FAERS Safety Report 5748252-X (Version None)
Quarter: 2008Q2

REPORT INFORMATION
  Report Type: 
  Country: None (occurrence: None)
  Receive Date: 20080523
  Receipt Date: 20080514
  Transmission Date: 20081010
  Serious: Yes (Other)
  Sender: FDA-Public Use
  Company Number: DK-PFIZER INC-2004110623

PATIENT
  Sex: Male
  Weight: 85 kg

DRUGS (6)
  1. LYRICA [Suspect]
     Indication: FIBROMYALGIA
     Route: 048
     Dates: start: 20041119, end: 20041201
  2. LYRICA [Suspect]
  3. OXYCONTIN [Suspect]
     Route: 048
  4. OXYNORM [Suspect]
     Route: 048
  5. SELO-ZOK [Concomitant]
     Route: 048
  6. PRAVACHOL [Concomitant]
     Route: 048

REACTIONS (12)
  - BRADYCARDIA [None]
  - BURNING SENSATION [None]
  - DIZZINESS [None]
  - DYSAESTHESIA [None]
  - FACIAL PALSY [None]
  - FEAR [None]
  - HEARING IMPAIRED [None]
  - MUSCLE SPASMS [None]
  - PARALYSIS [None]
  - SENSORY LOSS [None]
  - VISUAL DISTURBANCE [None]
  - VOMITING [None]
